FAERS Safety Report 17362745 (Version 1)
Quarter: 2020Q1

REPORT INFORMATION
  Report Type: Spontaneous
  Country: GB (occurrence: GB)
  Receive Date: 20200203
  Receipt Date: 20200203
  Transmission Date: 20200409
  Serious: Yes (Other)
  Sender: FDA-Public Use
  Company Number: GB-PFIZER INC-2020038355

PATIENT
  Age: 50 Year
  Sex: Male
  Weight: 78 kg

DRUGS (8)
  1. PROMAZINE [Concomitant]
     Active Substance: PROMAZINE
     Dosage: 5 ML, UNK
     Dates: start: 20191223
  2. IBUPROFEN. [Suspect]
     Active Substance: IBUPROFEN
     Dosage: 400 MG, UNK
     Dates: start: 20191227
  3. PARACETAMOL [Concomitant]
     Active Substance: ACETAMINOPHEN
     Dosage: 4 G, 1X/DAY (MAX 4 G DAILY)
     Dates: start: 20191210, end: 20191214
  4. OMEPRAZOLE. [Concomitant]
     Active Substance: OMEPRAZOLE
     Dosage: 1 DF, 1X/DAY(MORNING)
     Dates: start: 20190920, end: 20191227
  5. CETIRIZINE [Concomitant]
     Active Substance: CETIRIZINE HYDROCHLORIDE
     Dosage: 1 DF, 1X/DAY
     Dates: start: 20190729, end: 20191227
  6. THIAMINE. [Concomitant]
     Active Substance: THIAMINE
     Dosage: 1 DF, 1X/DAY
     Dates: start: 20190724, end: 20191227
  7. DICLOFENAC DIETHYLAMINE [Concomitant]
     Active Substance: DICLOFENAC DIETHYLAMINE
     Dosage: UNK (AS DIRECTED)
     Dates: start: 20191223, end: 20191227
  8. CITALOPRAM [Concomitant]
     Active Substance: CITALOPRAM HYDROBROMIDE
     Dosage: 1 DF, 1X/DAY (AT 07:00)
     Dates: start: 20190724

REACTIONS (1)
  - Peptic ulcer [Recovered/Resolved]

NARRATIVE: CASE EVENT DATE: 20191227
